FAERS Safety Report 4400906-3 (Version None)
Quarter: 2004Q3

REPORT INFORMATION
  Report Type: 
  Country: None (occurrence: None)
  Receive Date: 20040907
  Receipt Date: 20030804
  Transmission Date: 20050211
  Serious: Yes (Other)
  Sender: FDA-Public Use
  Company Number: US-BRISTOL-MYERS SQUIBB COMPANY-12344701

PATIENT
  Sex: Male

DRUGS (2)
  1. COUMADIN [Suspect]
  2. TYLENOL [Concomitant]

REACTIONS (1)
  - HAEMOPTYSIS [None]
